FAERS Safety Report 13350721 (Version 2)
Quarter: 2017Q3

REPORT INFORMATION
  Report Type: Spontaneous
  Country: US (occurrence: US)
  Receive Date: 20170320
  Receipt Date: 20170705
  Transmission Date: 20171127
  Serious: Yes (Death, Hospitalization)
  Sender: FDA-Public Use
  Company Number: US-JNJFOC-20170317308

PATIENT
  Age: 70 Year
  Sex: Female

DRUGS (1)
  1. XARELTO [Suspect]
     Active Substance: RIVAROXABAN
     Indication: DEEP VEIN THROMBOSIS
     Route: 048
     Dates: start: 20140319, end: 20140323

REACTIONS (2)
  - Venous haemorrhage [Recovering/Resolving]
  - Procedural haemorrhage [Recovering/Resolving]

NARRATIVE: CASE EVENT DATE: 20140323
